FAERS Safety Report 9089963 (Version 1)
Quarter: 2013Q1

REPORT INFORMATION
  Report Type: Spontaneous
  Country: US (occurrence: US)
  Receive Date: 20130201
  Receipt Date: 20130201
  Transmission Date: 20140127
  Serious: No
  Sender: FDA-Public Use
  Company Number: US-009507513-1301USA013867

PATIENT
  Sex: Female

DRUGS (2)
  1. CORICIDIN HBP [Suspect]
     Indication: PRODUCT USED FOR UNKNOWN INDICATION
     Dosage: 3 DF, QD
     Route: 048
     Dates: start: 20121031
  2. CORICIDIN HBP [Suspect]
     Dosage: 2 DF, QD
     Route: 048
     Dates: start: 20121101

REACTIONS (1)
  - Somnolence [Not Recovered/Not Resolved]
